FAERS Safety Report 7811489-X (Version None)
Quarter: 2011Q4

REPORT INFORMATION
  Report Type: 
  Country: None (occurrence: None)
  Receive Date: 20111013
  Receipt Date: 20111013
  Transmission Date: 20120403
  Serious: Yes (Other)
  Sender: FDA-Public Use
  Company Number: None

PATIENT
  Age: 51 Year
  Sex: Female
  Weight: 89.811 kg

DRUGS (1)
  1. ZYPREXA [Suspect]
     Indication: BLOOD CHOLESTEROL
     Dosage: 10 MG
     Route: 048
     Dates: start: 20110927, end: 20110927

REACTIONS (4)
  - IMPAIRED WORK ABILITY [None]
  - SOMNOLENCE [None]
  - LETHARGY [None]
  - DRUG DISPENSING ERROR [None]
